FAERS Safety Report 6975851-X (Version None)
Quarter: 2010Q3

REPORT INFORMATION
  Report Type: 
  Country: None (occurrence: None)
  Receive Date: 20100910
  Receipt Date: 20090527
  Transmission Date: 20110219
  Serious: No
  Sender: FDA-Public Use
  Company Number: US-WYE-H08949409

PATIENT
  Sex: Female

DRUGS (4)
  1. PRISTIQ [Suspect]
     Indication: OBSESSIVE-COMPULSIVE DISORDER
     Route: 048
  2. PRISTIQ [Suspect]
     Route: 048
  3. INVEGA [Concomitant]
  4. MULTI-VITAMINS [Concomitant]

REACTIONS (2)
  - DIZZINESS [None]
  - NAUSEA [None]
